FAERS Safety Report 9910470 (Version 1)
Quarter: 2014Q1

REPORT INFORMATION
  Report Type: Spontaneous
  Country: US (occurrence: US)
  Receive Date: 20140219
  Receipt Date: 20140219
  Transmission Date: 20141002
  Serious: No
  Sender: FDA-Public Use
  Company Number: US-GILEAD-2012-0049793

PATIENT
  Age: 48 Year
  Sex: Female
  Weight: 119.1 kg

DRUGS (5)
  1. LETAIRIS [Suspect]
     Indication: PULMONARY ARTERIAL HYPERTENSION
     Dosage: UNK
     Route: 048
  2. TYVASO [Suspect]
     Indication: PULMONARY ARTERIAL HYPERTENSION
     Dosage: UNK
  3. COUMADIN /00014802/ [Suspect]
     Dosage: UNK
  4. REVATIO [Suspect]
  5. OXYGEN [Suspect]

REACTIONS (1)
  - Epistaxis [Unknown]
